FAERS Safety Report 14425674 (Version 1)
Quarter: 2018Q1

REPORT INFORMATION
  Report Type: Spontaneous
  Country: US (occurrence: US)
  Receive Date: 20180122
  Receipt Date: 20180122
  Transmission Date: 20180509
  Serious: Yes (Other)
  Sender: FDA-Public Use
  Company Number: None

PATIENT

DRUGS (3)
  1. HYDROCO/APAP 10-325 TAB LUPI [Suspect]
     Active Substance: ACETAMINOPHEN\HYDROCODONE BITARTRATE
     Indication: SPINAL OSTEOARTHRITIS
     Dosage: ?          QUANTITY:1 TABLET(S);?
     Route: 048
     Dates: start: 20180120, end: 20180120
  2. HYDROCO/APAP 10-325 TAB LUPI [Suspect]
     Active Substance: ACETAMINOPHEN\HYDROCODONE BITARTRATE
     Indication: SURGICAL FAILURE
     Dosage: ?          QUANTITY:1 TABLET(S);?
     Route: 048
     Dates: start: 20180120, end: 20180120
  3. HYDROCO/APAP 10-325 TAB LUPI [Suspect]
     Active Substance: ACETAMINOPHEN\HYDROCODONE BITARTRATE
     Indication: SPINAL PAIN
     Dosage: ?          QUANTITY:1 TABLET(S);?
     Route: 048
     Dates: start: 20180120, end: 20180120

REACTIONS (7)
  - Head discomfort [None]
  - Headache [None]
  - Heart rate increased [None]
  - Gait inability [None]
  - Palpitations [None]
  - Visual impairment [None]
  - Product substitution issue [None]

NARRATIVE: CASE EVENT DATE: 20180120
